FAERS Safety Report 5733852-3 (Version None)
Quarter: 2008Q2

REPORT INFORMATION
  Report Type: 
  Country: None (occurrence: None)
  Receive Date: 20080509
  Receipt Date: 20080428
  Transmission Date: 20081010
  Serious: Yes (Hospitalization)
  Sender: FDA-Public Use
  Company Number: FR-PFIZER INC-2008037086

PATIENT
  Sex: Male

DRUGS (12)
  1. ALDACTONE [Suspect]
     Indication: CARDIAC FAILURE
     Route: 048
     Dates: start: 20071206, end: 20071219
  2. PERINDOPRIL ERBUMINE [Suspect]
     Indication: CARDIAC FAILURE
     Route: 048
     Dates: start: 20071206, end: 20071219
  3. AMILORIDE HCL AND HYDROCHLOROTHIAZIDE [Concomitant]
     Dosage: TEXT:1/2 TABLETS/DAILY
  4. OGAST [Concomitant]
  5. ASPIRIN [Concomitant]
  6. NITROGLYCERIN [Concomitant]
  7. MOLSIDOMINE [Concomitant]
  8. FUROSEMIDE [Concomitant]
  9. IPERTEN [Concomitant]
  10. PREDNISOLONE [Concomitant]
     Dates: start: 20071210, end: 20071219
  11. DURAGESIC-100 [Concomitant]
     Dosage: DAILY DOSE:25MCG
  12. DURAGESIC-100 [Concomitant]
     Dosage: DAILY DOSE:50MCG

REACTIONS (3)
  - GENERAL PHYSICAL HEALTH DETERIORATION [None]
  - RENAL FAILURE ACUTE [None]
  - SOMNOLENCE [None]
